FAERS Safety Report 24334326 (Version 1)
Quarter: 2024Q3

REPORT INFORMATION
  Report Type: Spontaneous
  Country: US (occurrence: US)
  Receive Date: 20240918
  Receipt Date: 20240918
  Transmission Date: 20241017
  Serious: No
  Sender: EMERGENT BIOSOLUTIONS
  Company Number: US-EMERGENT BIOSOLUTIONS-24000131

PATIENT
  Age: 32 Year
  Sex: Female
  Weight: 154.22 kg

DRUGS (3)
  1. NARCAN [Suspect]
     Active Substance: NALOXONE HYDROCHLORIDE
     Indication: Oropharyngeal pain
     Dosage: 4 MILLIGRAM, ONE DOSE
     Route: 045
     Dates: start: 20240910
  2. NARCAN [Suspect]
     Active Substance: NALOXONE HYDROCHLORIDE
     Indication: Nasopharyngitis
  3. OXYCODONE [Concomitant]
     Active Substance: OXYCODONE
     Indication: Migraine
     Dosage: UNK
     Route: 065
     Dates: start: 20240910

REACTIONS (3)
  - Feeling hot [Recovered/Resolved]
  - Hyperhidrosis [Recovered/Resolved]
  - Unintentional use for unapproved indication [Unknown]

NARRATIVE: CASE EVENT DATE: 20240910
